FAERS Safety Report 12213502 (Version 1)
Quarter: 2016Q1

REPORT INFORMATION
  Report Type: Spontaneous
  Country: US (occurrence: None)
  Receive Date: 20160325
  Receipt Date: 20160325
  Transmission Date: 20160526
  Serious: Yes (Hospitalization, Other)
  Sender: FDA-Public Use
  Company Number: None

PATIENT
  Age: 65 Year
  Sex: Female
  Weight: 62.6 kg

DRUGS (6)
  1. FISH OIL [Concomitant]
     Active Substance: FISH OIL
  2. RISEDRONATE [Suspect]
     Active Substance: RISEDRONATE SODIUM
     Indication: OSTEOPOROSIS
     Route: 048
     Dates: start: 20160301
  3. SYNTHROID [Concomitant]
     Active Substance: LEVOTHYROXINE SODIUM
  4. CALCIUM [Concomitant]
     Active Substance: CALCIUM
  5. PRAVASTATIN [Concomitant]
     Active Substance: PRAVASTATIN\PRAVASTATIN SODIUM
  6. VITAMIN D [Concomitant]
     Active Substance: CHOLECALCIFEROL

REACTIONS (16)
  - Hypoaesthesia oral [None]
  - Paraesthesia oral [None]
  - Headache [None]
  - Vision blurred [None]
  - Paraesthesia [None]
  - Insomnia [None]
  - Tachyphrenia [None]
  - Ocular hyperaemia [None]
  - Neuralgia [None]
  - Iritis [None]
  - Vomiting [None]
  - Decreased appetite [None]
  - Hypoaesthesia [None]
  - Asthenia [None]
  - Foreign body sensation in eyes [None]
  - Angle closure glaucoma [None]

NARRATIVE: CASE EVENT DATE: 20160308
